FAERS Safety Report 6045365-2 (Version None)
Quarter: 2009Q1

REPORT INFORMATION
  Report Type: 
  Country: None (occurrence: None)
  Receive Date: 20090121
  Receipt Date: 20090113
  Transmission Date: 20090719
  Serious: Yes (Other)
  Sender: FDA-Public Use
  Company Number: FR-BAYER-200830506GPV

PATIENT
  Age: 50 Year
  Sex: Female

DRUGS (3)
  1. MIRENA [Suspect]
     Indication: CONTRACEPTION
     Route: 015
     Dates: start: 20080702
  2. MIRENA [Suspect]
     Route: 015
     Dates: start: 20010101
  3. MIRENA [Suspect]
     Route: 015
     Dates: start: 19970101

REACTIONS (2)
  - ADENOCARCINOMA [None]
  - BREAST CANCER [None]
